FAERS Safety Report 6243261-9 (Version None)
Quarter: 2009Q2

REPORT INFORMATION
  Report Type: 
  Country: None (occurrence: None)
  Receive Date: 20090622
  Receipt Date: 20090605
  Transmission Date: 20091009
  Serious: Yes (Hospitalization)
  Sender: FDA-Public Use
  Company Number: WAES 0904USA02889

PATIENT
  Age: 69 Year
  Sex: Male

DRUGS (10)
  1. CAP VORINOSTAT [Suspect]
     Indication: MULTIPLE MYELOMA
     Dosage: 300 MG/DAILY PO
     Route: 048
     Dates: start: 20090330, end: 20090602
  2. CAP VORINOSTAT [Suspect]
     Indication: MULTIPLE MYELOMA
     Dosage: 300 MG/DAILY PO
     Route: 048
     Dates: start: 20090608
  3. VELCADE [Suspect]
     Indication: MULTIPLE MYELOMA
     Dosage: 1.77 MG/ IV
     Route: 042
     Dates: start: 20090330, end: 20090602
  4. VELCADE [Suspect]
     Indication: MULTIPLE MYELOMA
     Dosage: 1.77 MG/ IV
     Route: 042
     Dates: start: 20090608
  5. AMLODIPINE [Concomitant]
  6. ASPIRIN [Concomitant]
  7. LAXOBERON [Concomitant]
  8. REDOMEX [Concomitant]
  9. VFEND [Concomitant]
  10. ZOVIRAX [Concomitant]

REACTIONS (15)
  - ANAEMIA [None]
  - DIARRHOEA [None]
  - EYE DISORDER [None]
  - FALL [None]
  - HAEMATOMA [None]
  - HYPERGLYCAEMIA [None]
  - HYPOKALAEMIA [None]
  - HYPOVOLAEMIA [None]
  - INSOMNIA [None]
  - LEUKOPENIA [None]
  - MUSCULAR WEAKNESS [None]
  - OEDEMA PERIPHERAL [None]
  - RENAL FAILURE ACUTE [None]
  - THROMBOCYTOPENIA [None]
  - WOUND [None]
